FAERS Safety Report 17972010 (Version 3)
Quarter: 2020Q3

REPORT INFORMATION
  Report Type: Spontaneous
  Country: US (occurrence: US)
  Receive Date: 20200702
  Receipt Date: 20200903
  Transmission Date: 20201103
  Serious: No
  Sender: FDA-Public Use
  Company Number: US-BRISTOL-MYERS SQUIBB COMPANY-BMS-2020-052557

PATIENT
  Sex: Male
  Weight: 131.5 kg

DRUGS (3)
  1. COUMADIN [Suspect]
     Active Substance: WARFARIN SODIUM
     Dosage: 2.5 MILLIGRAM
     Route: 048
     Dates: start: 20140310
  2. COUMADIN [Suspect]
     Active Substance: WARFARIN SODIUM
     Indication: PRODUCT USED FOR UNKNOWN INDICATION
     Dosage: 5 MILLIGRAM
     Route: 048
     Dates: start: 20140306
  3. COUMADIN [Suspect]
     Active Substance: WARFARIN SODIUM
     Dosage: 7.5 MILLIGRAM
     Route: 048
     Dates: start: 20140309

REACTIONS (1)
  - Hypersensitivity [Unknown]
